FAERS Safety Report 5445583-8 (Version None)
Quarter: 2007Q3

REPORT INFORMATION
  Report Type: 
  Country: None (occurrence: None)
  Receive Date: 20070906
  Receipt Date: 20070827
  Transmission Date: 20080115
  Serious: Yes (Death)
  Sender: FDA-Public Use
  Company Number: US-SHR-US-2007-021630

PATIENT
  Age: 83 Year
  Sex: Female

DRUGS (5)
  1. BETASERON [Suspect]
     Indication: SECONDARY PROGRESSIVE MULTIPLE SCLEROSIS
     Dosage: 8 MIU, EVERY 2D
     Route: 058
     Dates: start: 19990129
  2. ZOLOFT [Concomitant]
     Indication: DEPRESSION
     Dosage: 50 MG, 1X/DAY
     Route: 048
  3. LYRICA [Concomitant]
     Indication: NEURALGIA
     Dosage: 50 MG, UNK
     Route: 048
  4. PEPCID [Concomitant]
     Dosage: 20 MG, 1X/DAY
     Route: 048
  5. OXYCODONE HCL [Concomitant]
     Indication: PAIN
     Dosage: 5 MG, AS REQ'D
     Route: 048

REACTIONS (1)
  - DEATH [None]
